FAERS Safety Report 21783152 (Version 2)
Quarter: 2023Q2

REPORT INFORMATION
  Report Type: Spontaneous
  Country: US (occurrence: US)
  Receive Date: 20221227
  Receipt Date: 20230406
  Transmission Date: 20230722
  Serious: No
  Sender: FDA-Public Use
  Company Number: US-SA-SAC20221223001040

PATIENT
  Age: 63 Year
  Sex: Male

DRUGS (1)
  1. DUPIXENT [Suspect]
     Active Substance: DUPILUMAB
     Indication: Dermatitis atopic
     Dosage: 300 MG, QOW
     Route: 058
     Dates: start: 202203

REACTIONS (14)
  - Lethargy [Recovered/Resolved]
  - Urinary incontinence [Unknown]
  - Nocturia [Unknown]
  - Muscular weakness [Unknown]
  - Asthenia [Unknown]
  - Arthralgia [Unknown]
  - Dermatitis atopic [Unknown]
  - Rash [Unknown]
  - Blister [Unknown]
  - Pruritus [Unknown]
  - Erythema [Unknown]
  - Skin exfoliation [Unknown]
  - Skin fissures [Unknown]
  - Nail disorder [Unknown]

NARRATIVE: CASE EVENT DATE: 20220101
